FAERS Safety Report 4809261-8 (Version None)
Quarter: 2005Q4

REPORT INFORMATION
  Report Type: 
  Country: None (occurrence: None)
  Receive Date: 20051021
  Receipt Date: 20051010
  Transmission Date: 20060501
  Serious: Yes (Other)
  Sender: FDA-Public Use
  Company Number: PHFR2005GB03145

PATIENT
  Sex: Female
  Weight: 1.6 kg

DRUGS (6)
  1. ANAFRANIL [Suspect]
     Dosage: TRANSPLACENTAL
     Route: 064
  2. LACTULOSE [Suspect]
     Dosage: TRANSPLACENTAL
     Route: 064
  3. AMOXICILLIN [Suspect]
     Dosage: TRANSPLACENTAL
     Route: 064
  4. SENNA(SENNA, SENNA ALEXANDRINA) [Suspect]
     Dosage: TRANSPLACENTAL
     Route: 064
  5. CYCLIZINE (CYCLIZINE) [Suspect]
     Dosage: TRANSPLACENTAL
     Route: 064
  6. GAVISCON [Suspect]
     Dosage: TRANSPLACENTAL
     Route: 064

REACTIONS (5)
  - APGAR SCORE LOW [None]
  - CAESAREAN SECTION [None]
  - DRUG EXPOSURE DURING PREGNANCY [None]
  - JAUNDICE NEONATAL [None]
  - PREMATURE BABY [None]
